FAERS Safety Report 17112252 (Version 2)
Quarter: 2020Q1

REPORT INFORMATION
  Report Type: Spontaneous
  Country: US (occurrence: US)
  Receive Date: 20191204
  Receipt Date: 20200131
  Transmission Date: 20200409
  Serious: No
  Sender: FDA-Public Use
  Company Number: US-TEVA-2019-US-1148902

PATIENT
  Sex: Female

DRUGS (1)
  1. ALBUTEROL INHALER HFA [Suspect]
     Active Substance: ALBUTEROL
     Route: 065

REACTIONS (2)
  - Dyspnoea [Unknown]
  - Drug delivery system malfunction [Unknown]
